FAERS Safety Report 23510731 (Version 1)
Quarter: 2024Q1

REPORT INFORMATION
  Report Type: Other
  Country: US (occurrence: None)
  Receive Date: 20240211
  Receipt Date: 20240211
  Transmission Date: 20240409
  Serious: Yes (Death)
  Sender: FDA-Public Use
  Company Number: US-ROCHE-3507104

PATIENT
  Age: 11 Year
  Sex: Female
  Weight: 19.6 kg

DRUGS (1)
  1. EVRYSDI [Suspect]
     Active Substance: RISDIPLAM
     Indication: Spinal muscular atrophy
     Dates: start: 20200827, end: 20231222

REACTIONS (2)
  - Epistaxis [Fatal]
  - Exsanguination [Fatal]

NARRATIVE: CASE EVENT DATE: 20231222
